FAERS Safety Report 9257338 (Version 3)
Quarter: 2015Q4

REPORT INFORMATION
  Report Type: Spontaneous
  Country: US (occurrence: US)
  Receive Date: 20130426
  Receipt Date: 20151228
  Transmission Date: 20160305
  Serious: Yes (Hospitalization, Other)
  Sender: FDA-Public Use
  Company Number: US-BAYER-2013-051264

PATIENT
  Age: 23 Year
  Sex: Female
  Weight: 121.1 kg

DRUGS (7)
  1. CYMBALTA [Concomitant]
     Active Substance: DULOXETINE HYDROCHLORIDE
  2. METOPROLOL [Concomitant]
     Active Substance: METOPROLOL
  3. ZOCOR [Concomitant]
     Active Substance: SIMVASTATIN
  4. HYDROCHLOROTHIAZIDE. [Concomitant]
     Active Substance: HYDROCHLOROTHIAZIDE
  5. YAZ [Suspect]
     Active Substance: DROSPIRENONE\ETHINYL ESTRADIOL
  6. YASMIN [Suspect]
     Active Substance: DROSPIRENONE\ETHINYL ESTRADIOL
  7. LISINOPRIL. [Concomitant]
     Active Substance: LISINOPRIL

REACTIONS (4)
  - Embolism arterial [None]
  - Deep vein thrombosis [None]
  - Cerebrovascular accident [None]
  - Cerebral infarction [None]

NARRATIVE: CASE EVENT DATE: 20060928
